FAERS Safety Report 13123257 (Version 1)
Quarter: 2017Q1

REPORT INFORMATION
  Report Type: Report from Study
  Country: US (occurrence: US)
  Receive Date: 20170117
  Receipt Date: 20170117
  Transmission Date: 20170428
  Serious: No
  Sender: FDA-Public Use
  Company Number: US-AMGEN-USASL2016170798

PATIENT
  Age: 21 Year
  Sex: Female

DRUGS (1)
  1. CORLANOR [Suspect]
     Active Substance: IVABRADINE HYDROCHLORIDE
     Indication: SINUS TACHYCARDIA
     Dosage: 2.5 MG, BID
     Route: 065
     Dates: end: 2016

REACTIONS (13)
  - Skin exfoliation [Not Recovered/Not Resolved]
  - Erythema [Not Recovered/Not Resolved]
  - Off label use [Unknown]
  - Flushing [Not Recovered/Not Resolved]
  - Hypotension [Unknown]
  - Fatigue [Unknown]
  - Feeling abnormal [Not Recovered/Not Resolved]
  - Sinus tachycardia [Unknown]
  - Memory impairment [Not Recovered/Not Resolved]
  - Rash [Not Recovered/Not Resolved]
  - Pollakiuria [Not Recovered/Not Resolved]
  - Drug effect decreased [Unknown]
  - Dizziness [Unknown]

NARRATIVE: CASE EVENT DATE: 2016
